FAERS Safety Report 6936637-5 (Version None)
Quarter: 2010Q3

REPORT INFORMATION
  Report Type: 
  Country: None (occurrence: None)
  Receive Date: 20100823
  Receipt Date: 20100813
  Transmission Date: 20110219
  Serious: Yes (Hospitalization)
  Sender: FDA-Public Use
  Company Number: SI-ROCHE-721460

PATIENT
  Sex: Male
  Weight: 76 kg

DRUGS (5)
  1. XELODA [Suspect]
     Indication: PRODUCT USED FOR UNKNOWN INDICATION
     Route: 048
     Dates: start: 20060801
  2. XELODA [Suspect]
     Dosage: REINTRODUCED
     Route: 048
  3. AMPRIL [Concomitant]
     Dosage: 5 MG,1TAB/DAY
     Route: 048
  4. CORDIPIN [Concomitant]
     Dosage: 20 MG , 1 TAB /DAY
     Route: 048
  5. CONTROLOC [Concomitant]
     Dosage: 20 MG 1TAB/DAY

REACTIONS (2)
  - FIBROSIS [None]
  - GASTROINTESTINAL STOMA COMPLICATION [None]
